FAERS Safety Report 10782624 (Version 1)
Quarter: 2015Q1

REPORT INFORMATION
  Report Type: Spontaneous
  Country: US (occurrence: US)
  Receive Date: 20150210
  Receipt Date: 20150210
  Transmission Date: 20150721
  Serious: No
  Sender: FDA-Public Use
  Company Number: US-GLAXOSMITHKLINE-A1065721A

PATIENT

DRUGS (1)
  1. VALTREX [Suspect]
     Active Substance: VALACYCLOVIR HYDROCHLORIDE
     Indication: PRODUCT USED FOR UNKNOWN INDICATION
     Dosage: 500 MG (1 TABLET) ONCE DAILY.  IF OUTBREAK, INCREASE TO 500 MG TWICE DAILY FOR 5 DAYS THEN BACK[...]
     Route: 065
     Dates: start: 20091005

REACTIONS (1)
  - Ill-defined disorder [Unknown]
